FAERS Safety Report 21029961 (Version 3)
Quarter: 2022Q4

REPORT INFORMATION
  Report Type: Spontaneous
  Country: US (occurrence: US)
  Receive Date: 20220701
  Receipt Date: 20221012
  Transmission Date: 20230113
  Serious: Yes (Other)
  Sender: FDA-Public Use
  Company Number: US-JNJFOC-20220649295

PATIENT
  Age: 56 Year
  Sex: Female

DRUGS (1)
  1. ELMIRON [Suspect]
     Active Substance: PENTOSAN POLYSULFATE SODIUM
     Indication: Cystitis interstitial
     Route: 048
     Dates: start: 201212, end: 202010

REACTIONS (4)
  - Macular degeneration [Unknown]
  - Retinal dystrophy [Unknown]
  - Toxicity to various agents [Unknown]
  - Depression [Unknown]

NARRATIVE: CASE EVENT DATE: 20140801
